FAERS Safety Report 4964230-2 (Version None)
Quarter: 2006Q2

REPORT INFORMATION
  Report Type: 
  Country: None (occurrence: None)
  Receive Date: 20060406
  Receipt Date: 20050502
  Transmission Date: 20061013
  Serious: Yes (Death, Life-Threatening, Hospitalization)
  Sender: FDA-Public Use
  Company Number: US-BOEHRINGER INGELHEIM PHARMACEUTICALS, INC.-2005-BP-07305BP

PATIENT
  Sex: Male
  Weight: 69.85 kg

DRUGS (6)
  1. TIPRANAVIR / RITONAVIR CAPSULES [Suspect]
     Indication: HIV INFECTION
     Route: 048
     Dates: start: 20030829, end: 20050829
  2. TENOFOVIR [Suspect]
     Indication: HIV INFECTION
     Route: 048
     Dates: start: 20030829, end: 20050829
  3. EFAVIRENZ [Suspect]
     Indication: HIV INFECTION
     Route: 048
     Dates: start: 20030515, end: 20050829
  4. PLAVIX [Concomitant]
     Indication: CEREBRAL INFARCTION
     Route: 048
     Dates: start: 20050307, end: 20050501
  5. LEXAPRO [Concomitant]
     Indication: DEPRESSION
     Route: 048
     Dates: start: 20050307, end: 20050501
  6. DAPSONE [Concomitant]
     Indication: ANTIBIOTIC PROPHYLAXIS
     Route: 048
     Dates: start: 20031201, end: 20050829

REACTIONS (8)
  - BRAIN OEDEMA [None]
  - CEREBRAL HAEMATOMA [None]
  - CONVULSION [None]
  - HAEMORRHAGE INTRACRANIAL [None]
  - LOSS OF CONSCIOUSNESS [None]
  - NEUTROPENIA [None]
  - RESPIRATORY DISTRESS [None]
  - WHITE BLOOD CELL COUNT DECREASED [None]
